FAERS Safety Report 6553743-8 (Version None)
Quarter: 2010Q1

REPORT INFORMATION
  Report Type: 
  Country: None (occurrence: None)
  Receive Date: 20100127
  Receipt Date: 20100114
  Transmission Date: 20100710
  Serious: Yes (Hospitalization, Other)
  Sender: FDA-Public Use
  Company Number: PHHY2010ES02536

PATIENT
  Age: 39 Year
  Sex: Male

DRUGS (4)
  1. PROLEUKIN [Suspect]
     Dosage: 4.5 MIU, BID FOR 5 DAYS EVERY TWO MONTHS
     Route: 058
  2. TENOFOVIR [Concomitant]
     Indication: HIV INFECTION
  3. LOPINAVIR AND RITONAVIR [Concomitant]
     Indication: HIV INFECTION
  4. LAMIVUDINE [Concomitant]
     Indication: HIV INFECTION

REACTIONS (8)
  - NECROSIS [None]
  - PAIN IN EXTREMITY [None]
  - PERIPHERAL COLDNESS [None]
  - PERIPHERAL ISCHAEMIA [None]
  - SKIN DISCOLOURATION [None]
  - SKIN LESION [None]
  - SKIN ULCER [None]
  - TENDERNESS [None]
